APPROVED DRUG PRODUCT: ORTHO-NOVUM 7/7/7-21
Active Ingredient: ETHINYL ESTRADIOL; NORETHINDRONE
Strength: 0.035MG,0.035MG,0.035MG;0.5MG,0.75MG,1MG
Dosage Form/Route: TABLET;ORAL-21
Application: N018985 | Product #001
Applicant: JANSSEN PHARMACEUTICALS INC
Approved: Apr 4, 1984 | RLD: No | RS: No | Type: DISCN